FAERS Safety Report 12203427 (Version 2)
Quarter: 2016Q2

REPORT INFORMATION
  Report Type: Spontaneous
  Country: MY (occurrence: MY)
  Receive Date: 20160323
  Receipt Date: 20160411
  Transmission Date: 20160815
  Serious: Yes (Death, Other)
  Sender: FDA-Public Use
  Company Number: PHHY2016MY036562

PATIENT
  Age: 46 Year
  Sex: Male

DRUGS (1)
  1. ENTRESTO [Suspect]
     Active Substance: SACUBITRIL\VALSARTAN
     Indication: CARDIAC FAILURE
     Dosage: 50 MG, BID
     Route: 065
     Dates: start: 20160314

REACTIONS (3)
  - Cardiac arrest [Unknown]
  - Torsade de pointes [Fatal]
  - Blood potassium increased [Unknown]

NARRATIVE: CASE EVENT DATE: 20160315
